FAERS Safety Report 7687192-6 (Version None)
Quarter: 2011Q3

REPORT INFORMATION
  Report Type: 
  Country: None (occurrence: None)
  Receive Date: 20110816
  Receipt Date: 20110810
  Transmission Date: 20111222
  Serious: Yes (Other)
  Sender: FDA-Public Use
  Company Number: CHPA2011US10720

PATIENT
  Age: 66 Year
  Sex: Female

DRUGS (2)
  1. EXCEDRIN (MIGRAINE) [Suspect]
     Dosage: 1 DF, QD
     Route: 048
     Dates: end: 20110724
  2. EXCEDRIN (MIGRAINE) [Suspect]
     Dosage: UNK , UNK
     Route: 048
     Dates: start: 20110810

REACTIONS (5)
  - OFF LABEL USE [None]
  - MIGRAINE [None]
  - SCIATICA [None]
  - ARTHRALGIA [None]
  - BACK PAIN [None]
